FAERS Safety Report 13073822 (Version 4)
Quarter: 2017Q1

REPORT INFORMATION
  Report Type: Spontaneous
  Country: US (occurrence: US)
  Receive Date: 20161229
  Receipt Date: 20170203
  Transmission Date: 20170428
  Serious: Yes (Other)
  Sender: FDA-Public Use
  Company Number: US-GILEAD-2016-0250805

PATIENT
  Age: 30 Year
  Sex: Male
  Weight: 110 kg

DRUGS (1)
  1. HARVONI [Suspect]
     Active Substance: LEDIPASVIR\SOFOSBUVIR
     Indication: HEPATITIS C
     Dosage: UNK
     Route: 065
     Dates: start: 20161122, end: 20161221

REACTIONS (2)
  - Psychotic disorder [Recovered/Resolved]
  - Treatment noncompliance [Recovered/Resolved]
